FAERS Safety Report 16860204 (Version 1)
Quarter: 2019Q3

REPORT INFORMATION
  Report Type: Spontaneous
  Country: DE (occurrence: DE)
  Receive Date: 20190927
  Receipt Date: 20190927
  Transmission Date: 20191005
  Serious: Yes (Hospitalization, Other)
  Sender: FDA-Public Use
  Company Number: DE-HIKMA PHARMACEUTICALS USA INC.-DE-H14001-19-47087

PATIENT
  Age: 23 Year
  Sex: Female
  Weight: 78 kg

DRUGS (15)
  1. METHYLDOPA. [Suspect]
     Active Substance: METHYLDOPA
     Indication: BLOOD PRESSURE INCREASED
     Dosage: 2 G, QD
     Route: 065
  2. METOPROLOL. [Suspect]
     Active Substance: METOPROLOL
     Indication: BLOOD PRESSURE INCREASED
     Dosage: ()
     Route: 065
  3. NIFEDIPINE. [Suspect]
     Active Substance: NIFEDIPINE
     Indication: BLOOD PRESSURE INCREASED
     Dosage: 10 MG, UNK
     Route: 065
  4. CEFUROXIME. [Suspect]
     Active Substance: CEFUROXIME
     Indication: PRODUCT USED FOR UNKNOWN INDICATION
     Dosage: 250 MG, TIW
     Route: 065
  5. ALLOPURINOL. [Suspect]
     Active Substance: ALLOPURINOL
     Indication: HYPERURICAEMIA
     Dosage: 6X PER WEEK ()
     Route: 065
  6. METHYLDOPA. [Suspect]
     Active Substance: METHYLDOPA
     Dosage: 250 MG, TID (ONE MORNINGS, ONE MIDDAYS, ONE EVENINGS)
     Route: 065
  7. TORASEMIDE [Suspect]
     Active Substance: TORSEMIDE
     Dosage: 50 MILLIGRAM, TIW
     Route: 065
  8. ALLOPURINOL. [Suspect]
     Active Substance: ALLOPURINOL
     Dosage: 300 MG, TIW
     Route: 065
  9. CEFUROXIME. [Suspect]
     Active Substance: CEFUROXIME
     Dosage: 250 MG, TIW
     Route: 065
  10. TORASEMIDE [Suspect]
     Active Substance: TORSEMIDE
     Indication: PRODUCT USED FOR UNKNOWN INDICATION
     Dosage: 50 MG, TIW
     Route: 065
  11. SODIUM HYDROGEN CARBONATE [Suspect]
     Active Substance: SODIUM BICARBONATE
     Indication: PRODUCT USED FOR UNKNOWN INDICATION
     Dosage: 1 G, TIW
     Route: 065
  12. CEFUROXIME. [Suspect]
     Active Substance: CEFUROXIME
     Dosage: 6X PER WEEK ()
     Route: 065
  13. TORASEMIDE [Suspect]
     Active Substance: TORSEMIDE
     Dosage: 150 MG, TIW
     Route: 065
  14. SODIUM HYDROGEN CARBONATE [Suspect]
     Active Substance: SODIUM BICARBONATE
     Dosage: 6X PER WEEK ()
     Route: 065
  15. BETAMETHASONE. [Suspect]
     Active Substance: BETAMETHASONE
     Indication: MATERNAL THERAPY TO ENHANCE FOETAL LUNG MATURITY
     Dosage: 12 MG, Q24H
     Route: 030

REACTIONS (4)
  - Blood pressure increased [Unknown]
  - General physical health deterioration [Unknown]
  - Premature delivery [Unknown]
  - Exposure during pregnancy [Recovered/Resolved]
